FAERS Safety Report 20115774 (Version 1)
Quarter: 2021Q4

REPORT INFORMATION
  Report Type: Spontaneous
  Country: US (occurrence: US)
  Receive Date: 20211126
  Receipt Date: 20211126
  Transmission Date: 20220303
  Serious: No
  Sender: FDA-Public Use
  Company Number: US-drreddys-SPO/USA/21/0143610

PATIENT
  Age: 84 Year
  Sex: Female
  Weight: 78.75 kg

DRUGS (3)
  1. IBANDRONATE SODIUM [Suspect]
     Active Substance: IBANDRONATE SODIUM
     Indication: Bone disorder
     Dates: start: 20210618
  2. IBANDRONATE SODIUM [Suspect]
     Active Substance: IBANDRONATE SODIUM
     Dates: start: 202109
  3. VITAMINS [Concomitant]
     Active Substance: VITAMINS
     Indication: Product used for unknown indication

REACTIONS (6)
  - Feeling abnormal [Unknown]
  - Head discomfort [Unknown]
  - Drainage [Unknown]
  - Cough [Unknown]
  - Influenza like illness [Unknown]
  - Product dose omission issue [Unknown]
